FAERS Safety Report 15716412 (Version 1)
Quarter: 2018Q4

REPORT INFORMATION
  Report Type: Spontaneous
  Country: US (occurrence: US)
  Receive Date: 20181213
  Receipt Date: 20181213
  Transmission Date: 20190205
  Serious: Yes (Other)
  Sender: FDA-Public Use
  Company Number: US-009507513-1812USA005059

PATIENT
  Sex: Male

DRUGS (1)
  1. KEYTRUDA [Suspect]
     Active Substance: PEMBROLIZUMAB
     Indication: KAPOSI^S SARCOMA
     Dosage: UNK
     Route: 042

REACTIONS (3)
  - Leg amputation [Unknown]
  - Pruritus generalised [Unknown]
  - Product use in unapproved indication [Unknown]
